FAERS Safety Report 5596513-X (Version None)
Quarter: 2008Q1

REPORT INFORMATION
  Report Type: 
  Country: None (occurrence: None)
  Receive Date: 20080118
  Receipt Date: 20080106
  Transmission Date: 20080703
  Serious: Yes (Other)
  Sender: FDA-Public Use
  Company Number: US-PFIZER INC-2008001519

PATIENT
  Age: 77 Year
  Sex: Male

DRUGS (1)
  1. ZYVOX [Suspect]
     Indication: STAPHYLOCOCCAL INFECTION
     Route: 048

REACTIONS (5)
  - DIARRHOEA [None]
  - LIP SWELLING [None]
  - NAUSEA [None]
  - RETCHING [None]
  - TONGUE OEDEMA [None]
